FAERS Safety Report 9305131 (Version 1)
Quarter: 2013Q2

REPORT INFORMATION
  Report Type: Spontaneous
  Country: US (occurrence: None)
  Receive Date: 20130521
  Receipt Date: 20130521
  Transmission Date: 20140414
  Serious: Yes (Life-Threatening, Other)
  Sender: FDA-Public Use
  Company Number: ADE13-010

PATIENT
  Age: 18 Day
  Sex: Male
  Weight: 1.45 kg

DRUGS (1)
  1. AZITHROMYCIN [Suspect]
     Indication: ATYPICAL PNEUMONIA
     Dosage: NOT SPECIFIED ONCE, IV
     Route: 042
     Dates: start: 20130420

REACTIONS (4)
  - Oxygen saturation decreased [None]
  - Bradycardia [None]
  - Metabolic acidosis [None]
  - Off label use [None]
